FAERS Safety Report 9275923 (Version 1)
Quarter: 2013Q2

REPORT INFORMATION
  Report Type: Spontaneous
  Country: US (occurrence: US)
  Receive Date: 20130507
  Receipt Date: 20130507
  Transmission Date: 20140414
  Serious: No
  Sender: FDA-Public Use
  Company Number: US-ROXANE LABORATORIES, INC.-2013-RO-00712RO

PATIENT
  Age: 53 Year
  Sex: Male

DRUGS (5)
  1. BUPRENORPHINE HYDROCHLORIDE [Suspect]
     Indication: DRUG WITHDRAWAL SYNDROME
     Dosage: 4 MG
     Route: 060
     Dates: start: 20130424, end: 20130425
  2. ACYCLOVIR [Concomitant]
     Dosage: 800 MG
     Route: 048
  3. LISINOPRIL [Concomitant]
     Dosage: 20 MG
     Route: 048
  4. HYDROCHLOROTHIAZIDE [Concomitant]
     Dosage: 25 MG
     Route: 048
  5. AMLODIPINE [Concomitant]
     Dosage: 10 MG
     Route: 048

REACTIONS (1)
  - Vomiting [Recovered/Resolved]
